FAERS Safety Report 13776607 (Version 1)
Quarter: 2017Q3

REPORT INFORMATION
  Report Type: Spontaneous
  Country: US (occurrence: US)
  Receive Date: 20170721
  Receipt Date: 20170721
  Transmission Date: 20171127
  Serious: Yes (Hospitalization)
  Sender: FDA-Public Use
  Company Number: None

PATIENT
  Age: 75 Year
  Sex: Male
  Weight: 94.1 kg

DRUGS (12)
  1. LEUPROLIDE ACETATE. [Suspect]
     Active Substance: LEUPROLIDE ACETATE
     Dates: end: 20170508
  2. VITAMIN D3 [Concomitant]
     Active Substance: CHOLECALCIFEROL
  3. ALBUTEROL. [Concomitant]
     Active Substance: ALBUTEROL
  4. ASPIRIN. [Concomitant]
     Active Substance: ASPIRIN
  5. TIZANIDINE. [Concomitant]
     Active Substance: TIZANIDINE
  6. NITROSTAT [Concomitant]
     Active Substance: NITROGLYCERIN
  7. TAMULOSIN [Concomitant]
     Active Substance: TAMSULOSIN
  8. SYMBICORT [Concomitant]
     Active Substance: BUDESONIDE\FORMOTEROL FUMARATE DIHYDRATE
  9. ATORVASTATIN [Concomitant]
     Active Substance: ATORVASTATIN
  10. CALCIUM CITRATE [Concomitant]
     Active Substance: CALCIUM CITRATE
  11. PANTOPRAZOLE [Concomitant]
     Active Substance: PANTOPRAZOLE
  12. CASODEX [Suspect]
     Active Substance: BICALUTAMIDE
     Dates: end: 20170719

REACTIONS (10)
  - Middle insomnia [None]
  - Atelectasis [None]
  - Migraine [None]
  - Chronic obstructive pulmonary disease [None]
  - Ataxia [None]
  - Headache [None]
  - Nausea [None]
  - Carotid artery stenosis [None]
  - Dysarthria [None]
  - Pulmonary fibrosis [None]

NARRATIVE: CASE EVENT DATE: 20170621
